FAERS Safety Report 5383245-6 (Version None)
Quarter: 2007Q3

REPORT INFORMATION
  Report Type: 
  Country: None (occurrence: None)
  Receive Date: 20070710
  Receipt Date: 20070629
  Transmission Date: 20080115
  Serious: Yes (Hospitalization, Other)
  Sender: FDA-Public Use
  Company Number: US-PFIZER INC-2006104125

PATIENT
  Sex: Female
  Weight: 42 kg

DRUGS (22)
  1. DILANTIN [Suspect]
     Indication: CONVULSION
     Route: 048
     Dates: start: 20050601, end: 20050705
  2. PHENOBARBITAL TAB [Suspect]
     Route: 042
  3. DIFLUCAN [Concomitant]
  4. NYSTATIN [Concomitant]
     Route: 061
  5. DEPAKOTE [Concomitant]
     Route: 048
  6. ROCEPHIN [Concomitant]
     Route: 042
  7. CEREBYX [Concomitant]
     Route: 042
  8. ACYCLOVIR [Concomitant]
     Route: 042
  9. AZITHROMYCIN [Concomitant]
     Route: 048
  10. DEPACON [Concomitant]
     Dosage: DAILY DOSE:337UNK
     Route: 042
  11. DEPAKENE [Concomitant]
     Route: 065
  12. LASIX [Concomitant]
     Route: 065
  13. ZOSYN [Concomitant]
     Route: 065
  14. KEPPRA [Concomitant]
     Route: 065
  15. PEPCID [Concomitant]
     Route: 042
  16. HYDRALAZINE HCL [Concomitant]
     Route: 065
  17. TRIAMCINOLONE [Concomitant]
     Route: 061
  18. SOLU-MEDROL [Concomitant]
     Dates: start: 20060715
  19. CLONAZEPAM [Concomitant]
     Route: 065
  20. ORAPRED [Concomitant]
     Route: 065
  21. PREDNISONE [Concomitant]
     Route: 065
  22. DIASTAT [Concomitant]
     Route: 054

REACTIONS (2)
  - STEVENS-JOHNSON SYNDROME [None]
  - THERAPEUTIC AGENT TOXICITY [None]
